FAERS Safety Report 4835615-X (Version None)
Quarter: 2005Q4

REPORT INFORMATION
  Report Type: 
  Country: None (occurrence: None)
  Receive Date: 20051121
  Receipt Date: 20051107
  Transmission Date: 20060501
  Serious: Yes (Hospitalization)
  Sender: FDA-Public Use
  Company Number: 2005152939

PATIENT
  Age: 58 Year
  Sex: Male
  Weight: 63.5036 kg

DRUGS (3)
  1. SUDAFED (PSEUDOEPHEDRINE) [Suspect]
     Indication: NASOPHARYNGITIS
     Dosage: UNSPECIFIED, ORAL
     Route: 048
     Dates: end: 20041020
  2. EPHEDRINE (EPHEDRINE) [Concomitant]
  3. COUGH AND COLD PREPARATIONS (COUGH AND COLD PREPARATIONS) [Concomitant]

REACTIONS (2)
  - ACCIDENT [None]
  - AMPHETAMINES POSITIVE [None]
